FAERS Safety Report 19790127 (Version 2)
Quarter: 2021Q3

REPORT INFORMATION
  Report Type: Report from Study
  Country: NL (occurrence: NL)
  Receive Date: 20210905
  Receipt Date: 20210925
  Transmission Date: 20211014
  Serious: Yes (Hospitalization, Other)
  Sender: FDA-Public Use
  Company Number: NL-AMGEN-NLDCT2021134655

PATIENT
  Age: 70 Year
  Sex: Male

DRUGS (28)
  1. CARFILZOMIB [Suspect]
     Active Substance: CARFILZOMIB
     Indication: PLASMA CELL MYELOMA
     Dosage: 20 MILLIGRAM/SQ. METER, PER CHEMO REGIM
     Route: 065
     Dates: start: 20210430
  2. FILGRASTIM [Suspect]
     Active Substance: FILGRASTIM
     Indication: HAEMATOPOIETIC STEM CELL MOBILISATION
     Dosage: 960 MICROGRAM, PER CHEMO REGIM
     Route: 065
     Dates: start: 20210826
  3. RIVAROXABAN [Concomitant]
     Active Substance: RIVAROXABAN
     Dosage: UNK
     Dates: start: 20210421
  4. DEXAMETHASONE. [Suspect]
     Active Substance: DEXAMETHASONE
     Indication: PLASMA CELL MYELOMA
     Dosage: 40 UNK, PER CHEMO REGIM
     Route: 065
     Dates: start: 20210723
  5. CEFTRIAXON [Concomitant]
     Active Substance: CEFTRIAXONE
     Indication: FEBRILE NEUTROPENIA
     Dosage: 2000 MILLIGRAM, QD
     Dates: start: 20210502, end: 20210901
  6. SIMVASTATIN. [Concomitant]
     Active Substance: SIMVASTATIN
     Dosage: UNK
     Dates: start: 20210406
  7. LOSARTAN. [Concomitant]
     Active Substance: LOSARTAN
     Dosage: UNK
     Dates: start: 20210308, end: 20210508
  8. FUROSEMIDE. [Concomitant]
     Active Substance: FUROSEMIDE
     Indication: OEDEMA PERIPHERAL
     Dosage: UNK
     Dates: start: 20210824, end: 20210901
  9. CARFILZOMIB [Suspect]
     Active Substance: CARFILZOMIB
     Dosage: 27 MILLIGRAM/SQ. METER, PER CHEMO REGIM
     Route: 065
  10. CARBASALAATCALCIUM [Concomitant]
     Active Substance: CARBASPIRIN CALCIUM
     Dosage: UNK
     Dates: start: 20210222
  11. METOPROLOL. [Concomitant]
     Active Substance: METOPROLOL
     Dosage: UNK
     Dates: start: 20210319
  12. PREDNISOLON [PREDNISONE] [Concomitant]
     Active Substance: PREDNISONE
     Indication: ADVERSE EVENT
     Dosage: UNK
     Dates: start: 20210508
  13. PARACETAMOL [Concomitant]
     Active Substance: ACETAMINOPHEN
     Indication: FEBRILE NEUTROPENIA
     Dosage: 1000 MILLIGRAM, AS NECESSARY
     Dates: start: 20210502, end: 20210901
  14. VALACICLOVIR [Concomitant]
     Active Substance: VALACYCLOVIR HYDROCHLORIDE
     Indication: PROPHYLAXIS
     Dosage: UNK
     Dates: start: 20210428
  15. HYDROCORTISON [HYDROCORTISONE] [Concomitant]
     Indication: ADVERSE EVENT
     Dosage: UNK
     Dates: start: 20210501, end: 20210501
  16. MAGNESIUM HYDROXIDE. [Concomitant]
     Active Substance: MAGNESIUM HYDROXIDE
     Indication: PROPHYLAXIS
     Dosage: UNK
     Dates: start: 20210806, end: 20210826
  17. COTRIMOXAZOL [Concomitant]
     Active Substance: SULFAMETHOXAZOLE\TRIMETHOPRIM
     Dosage: UNK
     Dates: start: 20210428
  18. OMEPRAZOL [OMEPRAZOLE] [Concomitant]
     Active Substance: OMEPRAZOLE
     Indication: PROPHYLAXIS
     Dosage: UNK
     Dates: start: 20210428
  19. PLATELETS [Concomitant]
     Active Substance: HUMAN PLATELET, ALLOGENIC
     Indication: PLATELET COUNT DECREASED
     Dosage: UNK
     Dates: start: 20210831, end: 20210831
  20. CYCLOPHOSPHAMIDE. [Suspect]
     Active Substance: CYCLOPHOSPHAMIDE
     Indication: PLASMA CELL MYELOMA
     Dosage: 4320 MILLIGRAM, PER CHEMO REGIM
     Route: 065
     Dates: start: 20210820
  21. PANTOPRAZOL [PANTOPRAZOLE] [Concomitant]
     Active Substance: PANTOPRAZOLE
     Dosage: UNK
     Dates: start: 20210308
  22. CETOMACROGOL [Concomitant]
     Active Substance: COSMETICS
     Indication: ADVERSE EVENT
     Dosage: UNK
     Dates: start: 20210505
  23. MIRCERA [Concomitant]
     Active Substance: METHOXY POLYETHYLENE GLYCOL-EPOETIN BETA
     Indication: ADVERSE EVENT
     Dosage: UNK
     Dates: start: 20210526
  24. ISATUXIMAB [Suspect]
     Active Substance: ISATUXIMAB
     Indication: PLASMA CELL MYELOMA
     Dosage: 900 MILLIGRAM, PER CHEMO REGIM
     Route: 065
     Dates: start: 20210723
  25. LENALIDOMIDE [Suspect]
     Active Substance: LENALIDOMIDE
     Indication: PLASMA CELL MYELOMA
     Dosage: 10 UNK, PER CHEMO REGIM
     Route: 065
     Dates: start: 20210723
  26. CYCLOPHOSPHAMIDE. [Suspect]
     Active Substance: CYCLOPHOSPHAMIDE
     Indication: HAEMATOPOIETIC STEM CELL MOBILISATION
  27. SODIUM BICARBONATE. [Concomitant]
     Active Substance: SODIUM BICARBONATE
     Indication: ADVERSE EVENT
     Dosage: UNK
     Dates: start: 20210512
  28. APREPITANT. [Concomitant]
     Active Substance: APREPITANT
     Indication: PROPHYLAXIS
     Dosage: UNK
     Dates: start: 20210806, end: 20210808

REACTIONS (1)
  - Febrile neutropenia [Recovered/Resolved]

NARRATIVE: CASE EVENT DATE: 20210830
